FAERS Safety Report 10983743 (Version 7)
Quarter: 2016Q1

REPORT INFORMATION
  Report Type: Report from Study
  Country: US (occurrence: US)
  Receive Date: 20150403
  Receipt Date: 20160314
  Transmission Date: 20160525
  Serious: Yes (Hospitalization)
  Sender: FDA-Public Use
  Company Number: US-SANOFI-AVENTIS-2013SA025691

PATIENT
  Age: 45 Year
  Sex: Female

DRUGS (33)
  1. FENOFIBRATE. [Concomitant]
     Active Substance: FENOFIBRATE
  2. NORCO [Concomitant]
     Active Substance: ACETAMINOPHEN\HYDROCODONE BITARTRATE
     Dosage: DOSE- 5-325 , FREQUENCY- AS NEEDED
  3. ADVIL [Concomitant]
     Active Substance: IBUPROFEN
     Dosage: 200 MG
  4. CITALOPRAM [Concomitant]
     Active Substance: CITALOPRAM HYDROBROMIDE
     Dosage: 10 MG
  5. AUBAGIO [Suspect]
     Active Substance: TERIFLUNOMIDE
     Indication: MULTIPLE SCLEROSIS
     Route: 048
     Dates: start: 20160213
  6. VITAMIN D3 [Concomitant]
     Active Substance: CHOLECALCIFEROL
  7. EFFEXOR [Concomitant]
     Active Substance: VENLAFAXINE HYDROCHLORIDE
  8. VITAMIN B12 [Concomitant]
     Active Substance: CYANOCOBALAMIN
  9. ATORVASTATIN [Concomitant]
     Active Substance: ATORVASTATIN
     Dosage: 80 MG
  10. FEXOFENADINE [Concomitant]
     Active Substance: FEXOFENADINE\FEXOFENADINE HYDROCHLORIDE
     Dosage: 180 MG
  11. AUBAGIO [Suspect]
     Active Substance: TERIFLUNOMIDE
     Indication: MULTIPLE SCLEROSIS
     Route: 048
     Dates: start: 20130129
  12. GABAPENTIN. [Concomitant]
     Active Substance: GABAPENTIN
  13. GUAIFENESIN. [Concomitant]
     Active Substance: GUAIFENESIN
     Dosage: 180 MG
  14. VENTOLIN HFA [Concomitant]
     Active Substance: ALBUTEROL SULFATE
  15. TRAZODONE [Concomitant]
     Active Substance: TRAZODONE HYDROCHLORIDE
  16. IBUPROFEN. [Concomitant]
     Active Substance: IBUPROFEN
  17. JUNEL FE 1/20 [Concomitant]
     Active Substance: ETHINYL ESTRADIOL\NORETHINDRONE ACETATE
     Dosage: 1.5/30
  18. MOTRIN [Concomitant]
     Active Substance: IBUPROFEN
     Dosage: DOSE- 600 , FREQUENCY- AS NEEDED
  19. ASPIRIN. [Concomitant]
     Active Substance: ASPIRIN
  20. XANAX [Concomitant]
     Active Substance: ALPRAZOLAM
     Dosage: FREQUENCY- AS NEEDED
  21. AMPYRA [Concomitant]
     Active Substance: DALFAMPRIDINE
     Dosage: 10 MG
  22. PRAVACHOL [Concomitant]
     Active Substance: PRAVASTATIN SODIUM
  23. PLAVIX [Concomitant]
     Active Substance: CLOPIDOGREL BISULFATE
  24. NITROGLYCERIN ^SLOVAKOFARMA^ [Concomitant]
     Dosage: FREQUENCY- AS NEEDED
  25. METOPROLOL. [Concomitant]
     Active Substance: METOPROLOL
     Dosage: 25 MG ER
  26. VENLAFAXINE [Concomitant]
     Active Substance: VENLAFAXINE HYDROCHLORIDE
     Dosage: 100 MG
  27. AUBAGIO [Suspect]
     Active Substance: TERIFLUNOMIDE
     Indication: MULTIPLE SCLEROSIS
     Route: 048
     Dates: start: 201508, end: 20151201
  28. SOMA [Concomitant]
     Active Substance: CARISOPRODOL
  29. TOPROL XL [Concomitant]
     Active Substance: METOPROLOL SUCCINATE
  30. PROTONIX [Concomitant]
     Active Substance: PANTOPRAZOLE SODIUM
  31. BACLOFEN. [Concomitant]
     Active Substance: BACLOFEN
     Dosage: 20 MG
  32. OMEPRAZOLE. [Concomitant]
     Active Substance: OMEPRAZOLE
     Dosage: 20 MG
  33. PANTOPRAZOLE [Concomitant]
     Active Substance: PANTOPRAZOLE SODIUM
     Dosage: 40 MG

REACTIONS (13)
  - Decreased appetite [Recovering/Resolving]
  - Nausea [Not Recovered/Not Resolved]
  - Chest pain [Not Recovered/Not Resolved]
  - Feeling abnormal [Not Recovered/Not Resolved]
  - Fracture [Unknown]
  - Diarrhoea [Recovering/Resolving]
  - Hair texture abnormal [Not Recovered/Not Resolved]
  - Alopecia [Recovered/Resolved]
  - Pain [Not Recovered/Not Resolved]
  - Drug dose omission [Unknown]
  - Dizziness [Recovering/Resolving]
  - Asthenia [Not Recovered/Not Resolved]
  - Nerve compression [Unknown]

NARRATIVE: CASE EVENT DATE: 201508
